FAERS Safety Report 8809360 (Version 1)
Quarter: 2012Q4

REPORT INFORMATION
  Report Type: 
  Country: US (occurrence: US)
  Receive Date: 20120926
  Receipt Date: 20120926
  Transmission Date: 20130627
  Serious: No
  Sender: FDA-Public Use
  Company Number: US-ASTRAZENECA-2012SE71674

PATIENT
  Age: 48 Year
  Sex: Female

DRUGS (1)
  1. SYMBICORT PMDI [Suspect]
     Route: 055

REACTIONS (4)
  - Bronchitis [Recovered/Resolved]
  - Paradoxical drug reaction [Unknown]
  - Intentional drug misuse [Unknown]
  - Drug ineffective [Unknown]
